FAERS Safety Report 7199679-3 (Version None)
Quarter: 2010Q4

REPORT INFORMATION
  Report Type: 
  Country: None (occurrence: None)
  Receive Date: 20101228
  Receipt Date: 20101217
  Transmission Date: 20110411
  Serious: Yes (Hospitalization)
  Sender: FDA-Public Use
  Company Number: ES-ELI_LILLY_AND_COMPANY-ES201012004663

PATIENT
  Sex: Female
  Weight: 45 kg

DRUGS (7)
  1. FORTEO [Suspect]
     Indication: OSTEOPOROSIS
     Dosage: 20 UG, DAILY (1/D)
     Route: 058
     Dates: start: 20091119, end: 20101110
  2. OMEPRAZOLE [Concomitant]
     Indication: GASTRIC DISORDER
     Dosage: UNK, DAILY (1/D)
     Route: 048
  3. DAFLON [Concomitant]
     Indication: BLOOD DISORDER
     Dosage: 500 MG, DAILY (1/D)
     Route: 048
  4. ISODIUR [Concomitant]
     Indication: HYPERTENSION
     Dosage: 5 MG, UNKNOWN
     Route: 065
  5. GELODROX [Concomitant]
     Indication: ANALGESIC THERAPY
     Dosage: 50 MG, UNKNOWN
     Route: 065
  6. ACETAMINOPHEN [Concomitant]
     Indication: ANALGESIC THERAPY
     Dosage: 1 G, AS NEEDED
     Route: 048
  7. DURAGESIC-100 [Concomitant]
     Indication: ANALGESIC THERAPY
     Dosage: 50 UG, 1 PATCH /72 HOURS
     Route: 065

REACTIONS (1)
  - CHOLECYSTECTOMY [None]
